FAERS Safety Report 6268486-8 (Version None)
Quarter: 2009Q3

REPORT INFORMATION
  Report Type: 
  Country: None (occurrence: None)
  Receive Date: 20090710
  Receipt Date: 20090710
  Transmission Date: 20100115
  Serious: Yes (Other)
  Sender: FDA-Public Use
  Company Number: None

PATIENT
  Age: 45 Year
  Sex: Female
  Weight: 58.514 kg

DRUGS (2)
  1. LEVAQUIN [Suspect]
     Indication: URETERAL STENT INSERTION
     Dosage: 2 DAYS WORTH 1 PER DAY PO
     Route: 048
     Dates: start: 20090623, end: 20090624
  2. LEVAQUIN [Suspect]
     Indication: URETERAL STENT INSERTION
     Dosage: - IN HOSPTIAL CONTINUAL DRIP IV
     Route: 042
     Dates: start: 20090621, end: 20090622

REACTIONS (6)
  - BACK PAIN [None]
  - CONSTIPATION [None]
  - FATIGUE [None]
  - MOVEMENT DISORDER [None]
  - PAIN [None]
  - TENDONITIS [None]
